FAERS Safety Report 9874989 (Version 4)
Quarter: 2014Q2

REPORT INFORMATION
  Report Type: Other
  Country: US (occurrence: US)
  Receive Date: 20140206
  Receipt Date: 20140509
  Transmission Date: 20141212
  Serious: Yes (Hospitalization, Other)
  Sender: FDA-Public Use
  Company Number: US-ACORDA-ACO_35804_2013

PATIENT
  Sex: Male
  Weight: 58.96 kg

DRUGS (7)
  1. AMPYRA [Suspect]
     Indication: GAIT DISTURBANCE
     Dosage: 10 MG, BID
     Route: 048
     Dates: start: 201305, end: 2013
  2. AMPYRA [Suspect]
     Indication: MUSCULAR WEAKNESS
     Dosage: 10 MG, BID
     Route: 048
     Dates: start: 2014, end: 20140404
  3. AMPYRA [Suspect]
     Dosage: UNK
  4. WELLBUTRIN [Suspect]
     Indication: DEPRESSION
     Dosage: 150 MG, QD
     Route: 048
     Dates: end: 2013
  5. WELLBUTRIN [Suspect]
     Dosage: 300 MG, QD
     Route: 048
     Dates: start: 2013, end: 2013
  6. WELLBUTRIN [Suspect]
     Dosage: 150 MG, QD
     Route: 048
     Dates: start: 201307
  7. LISINOPRIL [Concomitant]
     Indication: PRODUCT USED FOR UNKNOWN INDICATION
     Dosage: 10 MG, UNK
     Route: 065

REACTIONS (9)
  - Mania [Recovered/Resolved]
  - Mania [Recovered/Resolved]
  - Muscular weakness [Not Recovered/Not Resolved]
  - Fall [Not Recovered/Not Resolved]
  - Hypokinesia [Not Recovered/Not Resolved]
  - Therapeutic response changed [Unknown]
  - Asthenia [Recovering/Resolving]
  - Drug dose omission [Unknown]
  - Drug ineffective [Unknown]
